FAERS Safety Report 18758801 (Version 3)
Quarter: 2021Q1

REPORT INFORMATION
  Report Type: Spontaneous
  Country: FR (occurrence: FR)
  Receive Date: 20210120
  Receipt Date: 20210209
  Transmission Date: 20210419
  Serious: Yes (Hospitalization, Other)
  Sender: FDA-Public Use
  Company Number: FR-TEVA-2021-FR-1870313

PATIENT
  Age: 56 Year
  Sex: Female
  Weight: 85.5 kg

DRUGS (3)
  1. PANTOPRAZOLE TEVA SANTE 40 MG [Suspect]
     Active Substance: PANTOPRAZOLE
     Dosage: 2 DOSAGE FORMS DAILY;
     Route: 065
     Dates: start: 20201002, end: 20201102
  2. PANTOPRAZOLE TEVA SANTE 40 MG [Suspect]
     Active Substance: PANTOPRAZOLE
     Indication: GASTROOESOPHAGEAL REFLUX DISEASE
     Dosage: 1 DOSAGE FORMS DAILY;
     Route: 065
     Dates: start: 20200901, end: 20201001
  3. PRAZEPAM [Concomitant]
     Active Substance: PRAZEPAM
     Dosage: AT BEDTIME
     Route: 065

REACTIONS (4)
  - Renal tubular disorder [Recovering/Resolving]
  - Acute kidney injury [Recovering/Resolving]
  - Blood creatine increased [Recovering/Resolving]
  - Nephritis allergic [Recovering/Resolving]

NARRATIVE: CASE EVENT DATE: 20201117
